FAERS Safety Report 20851141 (Version 2)
Quarter: 2022Q2

REPORT INFORMATION
  Report Type: Spontaneous
  Country: US (occurrence: US)
  Receive Date: 20220519
  Receipt Date: 20220601
  Transmission Date: 20220721
  Serious: Yes (Hospitalization)
  Sender: FDA-Public Use
  Company Number: US-TEVA-2022-US-2037031

PATIENT
  Weight: 54 kg

DRUGS (3)
  1. GUANFACINE [Suspect]
     Active Substance: GUANFACINE
     Indication: Anxiety
     Dosage: EXTENDED RELEASE TABLET (INGESTED FOUR TABLETS), 2 MG
     Route: 048
  2. ESCITALOPRAM [Suspect]
     Active Substance: ESCITALOPRAM OXALATE
     Indication: Anxiety
     Dosage: 20 MILLIGRAM DAILY; (INGESTED THREE TABLETS)
     Route: 048
  3. ESCITALOPRAM [Suspect]
     Active Substance: ESCITALOPRAM OXALATE
     Indication: Depression

REACTIONS (6)
  - Somnolence [Recovering/Resolving]
  - Dizziness [Recovering/Resolving]
  - Somnolence [Recovering/Resolving]
  - Bradycardia [Recovering/Resolving]
  - Hypotension [Recovering/Resolving]
  - Intentional overdose [Unknown]
